FAERS Safety Report 8290355-2 (Version None)
Quarter: 2012Q2

REPORT INFORMATION
  Report Type: 
  Country: None (occurrence: None)
  Receive Date: 20120417
  Receipt Date: 20120404
  Transmission Date: 20120825
  Serious: Yes (Hospitalization, Other)
  Sender: FDA-Public Use
  Company Number: US-ELI_LILLY_AND_COMPANY-US201202008526

PATIENT
  Sex: Male

DRUGS (25)
  1. CYMBALTA [Suspect]
     Dosage: 30 MG, QD
     Route: 048
  2. PERPHENAZINE [Concomitant]
     Indication: PARANOIA
     Dosage: 2 MG, BID
     Route: 048
  3. PERPHENAZINE [Concomitant]
     Dosage: 4 MG, EACH EVENING
     Route: 048
  4. COLACE [Concomitant]
     Dosage: 100 MG, QD
     Route: 048
  5. INVEGA [Concomitant]
     Indication: PARANOIA
     Dosage: 6 MG, EACH MORNING
     Route: 048
  6. THERA-M [Concomitant]
     Dosage: 1 DF, QD
     Route: 048
  7. CYMBALTA [Suspect]
     Indication: DEPRESSION
     Dosage: 80 MG, QD
  8. AMLODIPINE BESYLATE [Concomitant]
     Indication: HYPERTENSION
     Dosage: 5 MG, QD
     Route: 048
  9. PROTEIN SUPPLEMENTS [Concomitant]
     Dosage: 5 DF, BID
  10. TAMSULOSIN HCL [Concomitant]
     Indication: BENIGN PROSTATIC HYPERPLASIA
     Dosage: 0.4 MG, QD
  11. SIMVASTATIN [Concomitant]
     Indication: HYPERLIPIDAEMIA
     Dosage: 20 MG, QD
     Route: 048
  12. ASCORBIC ACID [Concomitant]
     Dosage: 500 MG, QD
     Route: 048
  13. LEVEMIR [Concomitant]
     Dosage: UNK, UNKNOWN
  14. METFORMIN HCL [Concomitant]
     Dosage: UNK, UNKNOWN
  15. POTASSIUM CHLORIDE [Concomitant]
     Indication: BLOOD POTASSIUM DECREASED
     Dosage: 20 MEQ, SINGLE
     Route: 048
  16. FERROUS SULFATE TAB [Concomitant]
     Dosage: 325 MG, BID
     Route: 048
  17. NAMENDA [Concomitant]
     Indication: DEMENTIA
     Dosage: 5 MG, BID
     Route: 048
  18. DEBROX [Concomitant]
     Dosage: 6 GTT, BID
  19. EXELON [Concomitant]
     Indication: DEMENTIA
     Dosage: 9.5 MG, QD
     Route: 062
  20. DIMETHICONE [Concomitant]
     Indication: PROPHYLAXIS
     Dosage: UNK, BID
  21. ASPIRIN [Concomitant]
  22. LISINOPRIL [Concomitant]
     Indication: HYPERTENSION
     Dosage: 10 MG, QD
     Route: 048
  23. NOVOLOG [Concomitant]
     Dosage: 1 DF, QID
  24. OMEPRAZOLE [Concomitant]
     Indication: PROPHYLAXIS AGAINST GASTROINTESTINAL ULCER
     Dosage: 20 MG, EACH EVENING
  25. POTASSIUM CHLORIDE [Concomitant]
     Dosage: 20 MEQ, QD
     Route: 048

REACTIONS (7)
  - PNEUMONIA [None]
  - DYSPHAGIA [None]
  - COLONIC POLYP [None]
  - HAEMATOCHEZIA [None]
  - OFF LABEL USE [None]
  - PNEUMONIA ASPIRATION [None]
  - ANAEMIA [None]
